FAERS Safety Report 8432253-7 (Version None)
Quarter: 2012Q2

REPORT INFORMATION
  Report Type: 
  Country: None (occurrence: None)
  Receive Date: 20120613
  Receipt Date: 20120607
  Transmission Date: 20120825
  Serious: Yes (Other)
  Sender: FDA-Public Use
  Company Number: PHHY2012ES048924

PATIENT
  Age: 67 Year
  Sex: Female

DRUGS (2)
  1. ZOLEDRONIC ACID [Suspect]
     Indication: METASTASES TO BONE
  2. LETROZOLE [Suspect]
     Indication: BREAST CANCER

REACTIONS (3)
  - OSTEONECROSIS OF JAW [None]
  - DENTAL FISTULA [None]
  - INFLAMMATION [None]
